FAERS Safety Report 6722834-0 (Version None)
Quarter: 2010Q2

REPORT INFORMATION
  Report Type: 
  Country: None (occurrence: None)
  Receive Date: 20100512
  Receipt Date: 20100512
  Transmission Date: 20101027
  Serious: Yes (Life-Threatening, Hospitalization)
  Sender: FDA-Public Use
  Company Number: None

PATIENT
  Sex: Male
  Weight: 105 kg

DRUGS (14)
  1. ERBITUX [Suspect]
     Indication: COLORECTAL CANCER
     Dosage: 400MG/M2 = 800MG ONCE IV DRIP
     Route: 041
     Dates: start: 20100507, end: 20100507
  2. ERBITUX [Suspect]
  3. SODIUM CHLORIDE [Concomitant]
  4. STERILE NACL FLUSH [Concomitant]
  5. FLOMAX [Concomitant]
  6. ZOCOR [Concomitant]
  7. ASPIRIN [Concomitant]
  8. MULTI-VITAMIN [Concomitant]
  9. ATIVAN [Concomitant]
  10. ADVIL [Concomitant]
  11. BENTYL [Concomitant]
  12. PRILOSEC OTC [Concomitant]
  13. MINOCYCLINE AND CLINDAMYCIN GEL [Concomitant]
  14. DIPHENHYDRAMINE HCL [Concomitant]

REACTIONS (4)
  - ANAPHYLACTIC REACTION [None]
  - CARDIAC ARREST [None]
  - ENDOTRACHEAL INTUBATION COMPLICATION [None]
  - PNEUMONIA [None]
